FAERS Safety Report 12897422 (Version 1)
Quarter: 2016Q4

REPORT INFORMATION
  Report Type: Spontaneous
  Country: US (occurrence: US)
  Receive Date: 20161031
  Receipt Date: 20161031
  Transmission Date: 20170207
  Serious: No
  Sender: FDA-Public Use
  Company Number: US-JNJFOC-20160907042

PATIENT
  Age: 60 Year
  Sex: Female
  Weight: 77.11 kg

DRUGS (3)
  1. GABAPENTIN. [Concomitant]
     Active Substance: GABAPENTIN
     Indication: PAIN
     Route: 048
  2. CYMBALTA [Concomitant]
     Active Substance: DULOXETINE HYDROCHLORIDE
     Indication: PAIN
     Route: 048
  3. SIMPONI ARIA [Suspect]
     Active Substance: GOLIMUMAB
     Indication: RHEUMATIC DISORDER
     Dosage: EVERY FOUR WEEKS FIRST TWO??DOSE, THEN EVERY EIGHT WEEKS/
     Route: 042
     Dates: start: 201607, end: 20160822

REACTIONS (11)
  - Abdominal discomfort [Not Recovered/Not Resolved]
  - Peripheral swelling [Not Recovered/Not Resolved]
  - Fatigue [Recovered/Resolved]
  - Off label use [Unknown]
  - Product use issue [Unknown]
  - Decreased appetite [Not Recovered/Not Resolved]
  - Pain [Unknown]
  - Arthralgia [Not Recovered/Not Resolved]
  - Hyperhidrosis [Not Recovered/Not Resolved]
  - Malaise [Recovered/Resolved]
  - Abdominal pain upper [Recovered/Resolved]

NARRATIVE: CASE EVENT DATE: 201607
